FAERS Safety Report 9700412 (Version 2)
Quarter: 2013Q4

REPORT INFORMATION
  Report Type: Spontaneous
  Country: US (occurrence: None)
  Receive Date: 20131119
  Receipt Date: 20131211
  Transmission Date: 20140711
  Serious: Yes (Hospitalization)
  Sender: FDA-Public Use
  Company Number: FK201304745

PATIENT
  Age: 60 Year
  Sex: 0
  Weight: 103 kg

DRUGS (3)
  1. GEMCITABINE [Suspect]
     Dosage: 2200MG, 2 IN 1 D
     Dates: start: 20130613, end: 20130919
  2. CISPLATIN [Suspect]
     Dates: start: 20130613, end: 20130919
  3. TEMSIROLIMUS [Suspect]
     Dates: start: 20130704, end: 20130912

REACTIONS (3)
  - Neutropenic sepsis [None]
  - White blood cell count decreased [None]
  - Febrile neutropenia [None]
